FAERS Safety Report 17339488 (Version 1)
Quarter: 2020Q1

REPORT INFORMATION
  Report Type: Spontaneous
  Country: US (occurrence: US)
  Receive Date: 20200128
  Receipt Date: 20200128
  Transmission Date: 20200409
  Serious: Yes (Disabling, Other)
  Sender: FDA-Public Use
  Company Number: None

PATIENT
  Age: 31 Year
  Sex: Male
  Weight: 65.25 kg

DRUGS (1)
  1. PERMETHRIN 5% [Suspect]
     Active Substance: PERMETHRIN
     Indication: ACARODERMATITIS
     Route: 061
     Dates: start: 20200104, end: 20200117

REACTIONS (4)
  - Dyslexia [None]
  - Brain injury [None]
  - Cognitive disorder [None]
  - Reading disorder [None]

NARRATIVE: CASE EVENT DATE: 20200122
